FAERS Safety Report 8438139-6 (Version None)
Quarter: 2012Q2

REPORT INFORMATION
  Report Type: 
  Country: None (occurrence: None)
  Receive Date: 20120614
  Receipt Date: 20120603
  Transmission Date: 20120825
  Serious: Yes (Hospitalization)
  Sender: FDA-Public Use
  Company Number: IL-ROCHE-1077777

PATIENT
  Sex: Female

DRUGS (2)
  1. OMALIZUMAB [Suspect]
     Indication: ASTHMA
     Route: 058
     Dates: start: 20100421
  2. PREDNISONE TAB [Concomitant]

REACTIONS (10)
  - ASTHMA [None]
  - ABDOMINAL PAIN [None]
  - ERYTHEMA [None]
  - ABDOMINAL PAIN UPPER [None]
  - ALLERGIC BRONCHITIS [None]
  - HENOCH-SCHONLEIN PURPURA [None]
  - ABDOMINAL TENDERNESS [None]
  - OEDEMA PERIPHERAL [None]
  - MUSCLE SPASMS [None]
  - MITOCHONDRIAL TOXICITY [None]
